FAERS Safety Report 7227773-7 (Version None)
Quarter: 2011Q1

REPORT INFORMATION
  Report Type: 
  Country: None (occurrence: None)
  Receive Date: 20110111
  Receipt Date: 20110111
  Transmission Date: 20110831
  Serious: Yes (Other)
  Sender: FDA-Public Use
  Company Number: None

PATIENT
  Sex: Female

DRUGS (1)
  1. STRATTERA [Suspect]
     Indication: ASPERGER'S DISORDER
     Dosage: 25 MGS. ONCE DAILY PO
     Route: 048
     Dates: start: 20110101, end: 20110105

REACTIONS (10)
  - IRRITABILITY [None]
  - RENAL DISORDER [None]
  - AGITATION [None]
  - ABDOMINAL DISTENSION [None]
  - BACK PAIN [None]
  - LIVER DISORDER [None]
  - PRURITUS [None]
  - INFLUENZA LIKE ILLNESS [None]
  - HOSTILITY [None]
  - AGGRESSION [None]
